FAERS Safety Report 7095940-1 (Version None)
Quarter: 2010Q4

REPORT INFORMATION
  Report Type: 
  Country: None (occurrence: None)
  Receive Date: 20101109
  Receipt Date: 20101109
  Transmission Date: 20110411
  Serious: Yes (Hospitalization)
  Sender: FDA-Public Use
  Company Number: None

PATIENT
  Sex: Female
  Weight: 48.9885 kg

DRUGS (1)
  1. AVASTIN [Suspect]
     Indication: BREAST CANCER METASTATIC
     Dosage: 15 MG/KG IV DRIP
     Route: 041
     Dates: start: 20090820, end: 20101104

REACTIONS (5)
  - COUGH [None]
  - HYPOKALAEMIA [None]
  - NAUSEA [None]
  - PYREXIA [None]
  - VOMITING [None]
